FAERS Safety Report 23628010 (Version 2)
Quarter: 2024Q1

REPORT INFORMATION
  Report Type: Report from Study
  Country: BR (occurrence: BR)
  Receive Date: 20240313
  Receipt Date: 20240321
  Transmission Date: 20240410
  Serious: Yes (Other)
  Sender: FDA-Public Use
  Company Number: BR-002147023-NVSC2024BR051861

PATIENT
  Sex: Female

DRUGS (2)
  1. SIMBRINZA [Suspect]
     Active Substance: BRIMONIDINE TARTRATE\BRINZOLAMIDE
     Indication: Glaucoma
     Dosage: UNK
     Route: 065
  2. DIOVAN [Suspect]
     Active Substance: VALSARTAN
     Indication: Blood pressure management
     Dosage: 80 MG
     Route: 065

REACTIONS (4)
  - Glaucoma [Unknown]
  - Drug hypersensitivity [Unknown]
  - Eye pain [Recovering/Resolving]
  - Rash [Recovering/Resolving]
